FAERS Safety Report 7954288-0 (Version None)
Quarter: 2011Q4

REPORT INFORMATION
  Report Type: 
  Country: None (occurrence: None)
  Receive Date: 20111202
  Receipt Date: 20111128
  Transmission Date: 20120403
  Serious: No
  Sender: FDA-Public Use
  Company Number: US-PFIZER INC-2011290066

PATIENT
  Sex: Female
  Weight: 61.224 kg

DRUGS (2)
  1. METOPROLOL [Concomitant]
     Indication: PALPITATIONS
     Dosage: UNK, 2X/DAY
  2. ZYVOX [Suspect]
     Indication: SINUSITIS
     Dosage: 600 MG, 2X/DAY
     Route: 048
     Dates: start: 20111126

REACTIONS (3)
  - FEAR OF EATING [None]
  - EATING DISORDER [None]
  - WEIGHT DECREASED [None]
